FAERS Safety Report 8539754-1 (Version None)
Quarter: 2012Q3

REPORT INFORMATION
  Report Type: 
  Country: None (occurrence: None)
  Receive Date: 20120726
  Receipt Date: 20120723
  Transmission Date: 20120928
  Serious: Yes (Other)
  Sender: FDA-Public Use
  Company Number: US-BAYER-2012-049662

PATIENT
  Age: 56 Year
  Sex: Female

DRUGS (2)
  1. PREDNISONE [Concomitant]
     Dosage: WEANING DOSES
     Dates: start: 20100301
  2. BETASERON [Suspect]
     Indication: MULTIPLE SCLEROSIS
     Dosage: 8 MIU, QOD
     Route: 058
     Dates: start: 20090515

REACTIONS (3)
  - BLOOD PRESSURE FLUCTUATION [None]
  - BRONCHITIS [None]
  - BLOOD PRESSURE DECREASED [None]
